FAERS Safety Report 15792529 (Version 1)
Quarter: 2019Q1

REPORT INFORMATION
  Report Type: Spontaneous
  Country: US (occurrence: US)
  Receive Date: 20190107
  Receipt Date: 20190107
  Transmission Date: 20190417
  Serious: Yes (Hospitalization, Other)
  Sender: FDA-Public Use
  Company Number: US-SUN PHARMACEUTICAL INDUSTRIES LTD-2018US-178465

PATIENT
  Age: 48 Year
  Sex: Male

DRUGS (3)
  1. CAFFEINE. [Suspect]
     Active Substance: CAFFEINE
     Dosage: 560 MG OF CAFFEINE IN MORNING
     Route: 048
  2. TESTOSTERONE. [Suspect]
     Active Substance: TESTOSTERONE
     Indication: PERFORMANCE ENHANCING PRODUCT USE
     Dosage: FOR 7 MONTHS EACH YEAR FOR THE LAST 4 YEARS
     Route: 065
  3. DEXTROAMPHET SACCHARAT, AMPHET ASPARTATE, DEXTROAMPHET SULFATE AND AMPHET SULFAT [Suspect]
     Active Substance: AMPHETAMINE ASPARTATE\AMPHETAMINE SULFATE\DEXTROAMPHETAMINE SACCHARATE\DEXTROAMPHETAMINE SULFATE
     Indication: PERFORMANCE ENHANCING PRODUCT USE
     Dosage: 60 MILLIGRAM, DAILY, FOR 7 MONTHS EACH YEAR FOR THE LAST 4 YEARS
     Route: 065

REACTIONS (2)
  - Intentional product misuse [Unknown]
  - Substance-induced psychotic disorder [Recovered/Resolved]
